FAERS Safety Report 7258021-X (Version None)
Quarter: 2011Q1

REPORT INFORMATION
  Report Type: 
  Country: None (occurrence: None)
  Receive Date: 20110129
  Receipt Date: 20100621
  Transmission Date: 20110831
  Serious: No
  Sender: FDA-Public Use
  Company Number: US-ABBOTT-10P-163-0651679-00

PATIENT
  Sex: Female
  Weight: 85.352 kg

DRUGS (10)
  1. OMEPRAZOLE [Concomitant]
     Indication: PRODUCT USED FOR UNKNOWN INDICATION
     Route: 048
  2. LIDODERM [Concomitant]
     Indication: PRODUCT USED FOR UNKNOWN INDICATION
     Dosage: 5% PATCH FOR 12 HOURS, OFF FOR 12 HOURS
     Route: 061
  3. ZYRTEC [Concomitant]
     Indication: PRODUCT USED FOR UNKNOWN INDICATION
     Route: 048
  4. CALCIUM [Concomitant]
     Indication: PRODUCT USED FOR UNKNOWN INDICATION
     Route: 048
  5. IMITREX [Concomitant]
     Indication: MIGRAINE
     Route: 048
  6. MICARDIS HCT [Concomitant]
     Indication: PRODUCT USED FOR UNKNOWN INDICATION
     Route: 048
  7. HUMIRA [Suspect]
     Indication: RHEUMATOID ARTHRITIS
     Route: 058
     Dates: start: 20100401, end: 20100505
  8. ENABLEX ER [Concomitant]
     Indication: PRODUCT USED FOR UNKNOWN INDICATION
     Route: 048
  9. ARAVA [Concomitant]
     Indication: RHEUMATOID ARTHRITIS
     Route: 048
  10. LEXAPRO [Concomitant]
     Indication: PRODUCT USED FOR UNKNOWN INDICATION
     Route: 048

REACTIONS (11)
  - BRONCHITIS [None]
  - ARTHRALGIA [None]
  - MOBILITY DECREASED [None]
  - SINUS HEADACHE [None]
  - PRODUCTIVE COUGH [None]
  - SINUSITIS [None]
  - JOINT EFFUSION [None]
  - DRUG INEFFECTIVE [None]
  - RHEUMATOID ARTHRITIS [None]
  - JOINT SWELLING [None]
  - SYNOVITIS [None]
